FAERS Safety Report 10035641 (Version 2)
Quarter: 2014Q2

REPORT INFORMATION
  Report Type: Spontaneous
  Country: US (occurrence: US)
  Receive Date: 20140325
  Receipt Date: 20140613
  Transmission Date: 20141212
  Serious: Yes (Other)
  Sender: FDA-Public Use
  Company Number: US-ASTRAZENECA-2014SE18639

PATIENT
  Age: 739 Month
  Sex: Female
  Weight: 71.7 kg

DRUGS (4)
  1. ATACAND [Suspect]
     Indication: HYPERTENSION
     Route: 048
     Dates: end: 201403
  2. ATACAND [Suspect]
     Indication: HYPERTENSION
     Dosage: GENERIC, 32 MG DAILY
     Route: 048
     Dates: start: 201403, end: 20140313
  3. ATACAND [Suspect]
     Indication: HYPERTENSION
     Route: 048
     Dates: start: 20140314
  4. ATENOLOL [Suspect]
     Indication: DRUG THERAPY
     Route: 048

REACTIONS (4)
  - Hypertension [Recovered/Resolved]
  - Blood pressure inadequately controlled [Recovered/Resolved]
  - Feeling abnormal [Unknown]
  - Intentional product misuse [Unknown]
